FAERS Safety Report 5054040-2 (Version None)
Quarter: 2006Q2

REPORT INFORMATION
  Report Type: 
  Country: None (occurrence: None)
  Receive Date: 20060616
  Receipt Date: 20060215
  Transmission Date: 20061013
  Serious: Yes (Hospitalization)
  Sender: FDA-Public Use
  Company Number: 200515638US

PATIENT
  Age: 69 Year
  Sex: Male

DRUGS (19)
  1. LANTUS [Suspect]
     Indication: DIABETES MELLITUS NON-INSULIN-DEPENDENT
     Dosage: 40 U HS SC
     Route: 058
  2. ZONEGRAN [Concomitant]
  3. VITAMINS NOS (VITAMINS NOS) [Concomitant]
  4. BUPROPION HCL [Suspect]
  5. CYMBALTA [Concomitant]
  6. TEMAZEPAM [Concomitant]
  7. CRESTOR [Concomitant]
  8. ZOLOFT [Concomitant]
  9. ISOSORBIDE MONONITRATE [Concomitant]
  10. MACROGOL (MIRALAX) [Concomitant]
  11. GLANTAMINE HYDROBROMIDE [Concomitant]
  12. ALTACE [Concomitant]
  13. FLUTICASONE PROPIONATE (FLONASE) [Concomitant]
  14. FLUTICASONE PROPIONATE, SALMETEROL XINAFOATE (ADVAIR) [Concomitant]
  15. ALLOPURINOL [Concomitant]
  16. BUMETANIDE [Concomitant]
  17. MEMANTINE HCL [Concomitant]
  18. PRILOSEC [Concomitant]
  19. QUININE SULFATE [Concomitant]

REACTIONS (1)
  - HYPOGLYCAEMIA [None]
